FAERS Safety Report 4276329-7 (Version None)
Quarter: 2004Q1

REPORT INFORMATION
  Report Type: 
  Country: None (occurrence: None)
  Receive Date: 20040120
  Receipt Date: 20040120
  Transmission Date: 20041129
  Serious: Yes (Hospitalization)
  Sender: FDA-Public Use
  Company Number: None

PATIENT
  Age: 87 Year
  Sex: Male
  Weight: 83.0083 kg

DRUGS (5)
  1. WARFARIN SODIUM [Suspect]
     Indication: ATRIAL FIBRILLATION
  2. BUMETANIDE [Concomitant]
  3. SERTRALINE HCL [Concomitant]
  4. OLANZAPINE [Concomitant]
  5. ACETAMINOPHEN [Concomitant]

REACTIONS (2)
  - ANAEMIA [None]
  - DYSPNOEA EXACERBATED [None]
